FAERS Safety Report 19718338 (Version 1)
Quarter: 2021Q3

REPORT INFORMATION
  Report Type: Spontaneous
  Country: AU (occurrence: AU)
  Receive Date: 20210818
  Receipt Date: 20210818
  Transmission Date: 20211014
  Serious: Yes (Other)
  Sender: FDA-Public Use
  Company Number: AU-OTSUKA-2021_028472

PATIENT
  Sex: Female

DRUGS (3)
  1. ABILIFY MAINTENA [Suspect]
     Active Substance: ARIPIPRAZOLE
     Indication: PRODUCT USED FOR UNKNOWN INDICATION
     Dosage: UNK
     Route: 065
  2. INVEGA SUSTENNA [Suspect]
     Active Substance: PALIPERIDONE PALMITATE
     Indication: PRODUCT USED FOR UNKNOWN INDICATION
     Dosage: PATIENT WAS TAKING PALIPERIDONE PALMITATE (INJECTION) FOR SOME TIME AND TRANSITIONED TO PALIPERIDONE
     Route: 030
  3. INVEGA SUSTENNA [Suspect]
     Active Substance: PALIPERIDONE PALMITATE
     Dosage: PATIENT WAS TAKING PALIPERIDONE PALMITATE (INJECTION) FOR SOME TIME AND TRANSITIONED TO PALIPERIDONE
     Route: 030

REACTIONS (2)
  - Psychotic symptom [Unknown]
  - Orthostatic hypotension [Unknown]
